FAERS Safety Report 4286737-6 (Version None)
Quarter: 2004Q1

REPORT INFORMATION
  Report Type: 
  Country: None (occurrence: None)
  Receive Date: 20040206
  Receipt Date: 20031027
  Transmission Date: 20041129
  Serious: Yes (Death)
  Sender: FDA-Public Use
  Company Number: FR-GLAXOSMITHKLINE-B0313068A

PATIENT
  Age: 92 Year
  Sex: Female

DRUGS (2)
  1. DEROXAT [Suspect]
     Indication: PERSECUTORY DELUSION
     Route: 048
     Dates: start: 20030101
  2. RISPERDAL [Suspect]
     Indication: PERSECUTORY DELUSION
     Route: 048
     Dates: start: 20030101

REACTIONS (3)
  - DEATH [None]
  - DRUG INTERACTION [None]
  - SOMNOLENCE [None]
